FAERS Safety Report 18900913 (Version 1)
Quarter: 2021Q1

REPORT INFORMATION
  Report Type: Other
  Country: LU (occurrence: LU)
  Receive Date: 20210217
  Receipt Date: 20210217
  Transmission Date: 20210420
  Serious: Yes (Hospitalization, Other)
  Sender: FDA-Public Use
  Company Number: LU-DENTSPLY-2021SCDP000040

PATIENT
  Age: 67 Year
  Sex: Female
  Weight: 93 kg

DRUGS (8)
  1. ESMERON [Suspect]
     Active Substance: ROCURONIUM BROMIDE
     Indication: NEUROMUSCULAR BLOCKING THERAPY
     Dosage: 50 MILLIGRAM, TOTAL
     Route: 042
     Dates: start: 20201216
  2. SUFENTA [Suspect]
     Active Substance: SUFENTANIL CITRATE
     Indication: STUPOR
     Dosage: 20 MICROGRAM, TOTAL
     Route: 040
     Dates: start: 20201216, end: 20201216
  3. SUFENTA [Suspect]
     Active Substance: SUFENTANIL CITRATE
     Indication: ANALGESIC THERAPY
  4. GELOFUSIN [ELECTROLYTES NOS\GELATIN] [Suspect]
     Active Substance: ELECTROLYTES NOS\GELATIN
     Indication: BLOOD VOLUME EXPANSION
     Dosage: 100 MILLILITER
     Route: 042
     Dates: start: 20201216, end: 20201216
  5. PROPOFOL. [Suspect]
     Active Substance: PROPOFOL
     Dosage: 50 MILLIGRAM
     Route: 040
     Dates: start: 20201216
  6. ZINACEF [Suspect]
     Active Substance: CEFUROXIME SODIUM
     Indication: ANTIBIOTIC PROPHYLAXIS
     Dosage: 1.5 GRAM, TOTAL
     Route: 042
     Dates: start: 20201216
  7. XYLOCAINE [Suspect]
     Active Substance: LIDOCAINE HYDROCHLORIDE
     Indication: ANALGESIC THERAPY
     Dosage: 20 MILLIGRAM, TOTAL
     Route: 042
     Dates: start: 20201216
  8. PROPOFOL. [Suspect]
     Active Substance: PROPOFOL
     Indication: STUPOR
     Dosage: 150 MILLIGRAM, TOTAL
     Route: 040
     Dates: start: 20201216

REACTIONS (1)
  - Anaphylactic shock [Recovered/Resolved]

NARRATIVE: CASE EVENT DATE: 20201216
